FAERS Safety Report 10537688 (Version 2)
Quarter: 2014Q4

REPORT INFORMATION
  Report Type: Spontaneous
  Country: BR (occurrence: None)
  Receive Date: 20141021
  Receipt Date: 20141106
  Transmission Date: 20150529
  Serious: Yes (Hospitalization)
  Sender: FDA-Public Use
  Company Number: FK201404270

PATIENT
  Age: 63 Year
  Sex: Male

DRUGS (1)
  1. GEMCITABINE (MANUFACTURER UNKNOWN) (GEMCITABINE) (GEMCITABINE) [Suspect]
     Active Substance: GEMCITABINE HYDROCHLORIDE
     Indication: ADENOCARCINOMA PANCREAS
     Dosage: CYCLICAL

REACTIONS (7)
  - Renal impairment [None]
  - Adenocarcinoma pancreas [None]
  - Thrombocytopenia [None]
  - Haemolytic anaemia [None]
  - Thrombotic microangiopathy [None]
  - Abdominal infection [None]
  - Neoplasm progression [None]
